FAERS Safety Report 23288015 (Version 2)
Quarter: 2023Q4

REPORT INFORMATION
  Report Type: Spontaneous
  Country: RO (occurrence: RO)
  Receive Date: 20231212
  Receipt Date: 20231219
  Transmission Date: 20240109
  Serious: Yes (Hospitalization, Other)
  Sender: FDA-Public Use
  Company Number: RO-ABBVIE-5517473

PATIENT
  Sex: Female

DRUGS (4)
  1. RITUXIMAB [Suspect]
     Active Substance: RITUXIMAB
     Dosage: UNK
  2. HUMIRA [Suspect]
     Active Substance: ADALIMUMAB
     Indication: Rheumatoid arthritis
     Dosage: 40 MG
     Route: 058
  3. METOTREXAT [METHOTREXATE SODIUM] [Concomitant]
     Dosage: 10 MG, WEEKLY
  4. ARAVA [Concomitant]
     Active Substance: LEFLUNOMIDE
     Dosage: 20 MG

REACTIONS (10)
  - Osteoarthritis [Unknown]
  - Inflammation [Unknown]
  - Dermatitis psoriasiform [Recovered/Resolved]
  - Therapeutic product effect decreased [Unknown]
  - Arthralgia [Unknown]
  - Alopecia [Unknown]
  - Joint swelling [Recovered/Resolved]
  - Blood cholesterol increased [Unknown]
  - Investigation abnormal [Unknown]
  - Skin lesion [Unknown]

NARRATIVE: CASE EVENT DATE: 20231101
